FAERS Safety Report 16731730 (Version 2)
Quarter: 2019Q4

REPORT INFORMATION
  Report Type: Report from Study
  Country: US (occurrence: US)
  Receive Date: 20190822
  Receipt Date: 20191030
  Transmission Date: 20200122
  Serious: No
  Sender: FDA-Public Use
  Company Number: US-SA-2019SA223208

PATIENT
  Age: 61 Year
  Sex: Female

DRUGS (1)
  1. TERIFLUNOMIDE. [Suspect]
     Active Substance: TERIFLUNOMIDE
     Indication: MULTIPLE SCLEROSIS
     Dosage: 7 MG, QD
     Route: 048
     Dates: start: 20181213

REACTIONS (4)
  - Pruritus [Unknown]
  - Toothache [Not Recovered/Not Resolved]
  - Nausea [Unknown]
  - Condition aggravated [Not Recovered/Not Resolved]

NARRATIVE: CASE EVENT DATE: 2019
